FAERS Safety Report 16017228 (Version 1)
Quarter: 2019Q1

REPORT INFORMATION
  Report Type: Spontaneous
  Country: US (occurrence: US)
  Receive Date: 20190228
  Receipt Date: 20190228
  Transmission Date: 20190418
  Serious: No
  Sender: FDA-Public Use
  Company Number: US-TEVA-2019-US-1014160

PATIENT
  Age: 60 Year
  Sex: Female

DRUGS (2)
  1. TEVA CLONAZEPAM [Suspect]
     Active Substance: CLONAZEPAM
     Indication: PERINATAL DEPRESSION
  2. TEVA CLONAZEPAM [Suspect]
     Active Substance: CLONAZEPAM
     Indication: ANXIETY
     Route: 065
     Dates: start: 1988

REACTIONS (2)
  - Product use in unapproved indication [Unknown]
  - Product prescribing error [Unknown]

NARRATIVE: CASE EVENT DATE: 1988
